FAERS Safety Report 8516129-2 (Version None)
Quarter: 2012Q3

REPORT INFORMATION
  Report Type: 
  Country: None (occurrence: None)
  Receive Date: 20120717
  Receipt Date: 20120620
  Transmission Date: 20120928
  Serious: No
  Sender: FDA-Public Use
  Company Number: US-NOVEN-12US004823

PATIENT
  Age: 48 Year
  Sex: Female

DRUGS (2)
  1. OXYCODONE HCL [Concomitant]
     Indication: PAIN
  2. FENTANYL [Suspect]
     Indication: PAIN
     Dosage: 50 UG/HR, UNK
     Dates: start: 20120617

REACTIONS (1)
  - APPLICATION SITE EROSION [None]
